FAERS Safety Report 4998645-3 (Version None)
Quarter: 2006Q2

REPORT INFORMATION
  Report Type: 
  Country: None (occurrence: None)
  Receive Date: 20060509
  Receipt Date: 20060424
  Transmission Date: 20061013
  Serious: Yes (Other)
  Sender: FDA-Public Use
  Company Number: 2006BH009108

PATIENT
  Sex: Female

DRUGS (2)
  1. VINORELBINE TARTRATE [Suspect]
     Indication: BREAST CANCER
     Dosage: 12.5 MG/M**2, IV; SEE IMAGE
     Route: 042
  2. CAPECITABINE (CAPECITABINE) [Suspect]
     Indication: BREAST CANCER
     Dosage: 500 MG/M**2, 2X A DAY; PO; SEE IMAGE
     Route: 048

REACTIONS (3)
  - DIARRHOEA [None]
  - EMBOLISM [None]
  - PYREXIA [None]
